FAERS Safety Report 23751586 (Version 5)
Quarter: 2024Q4

REPORT INFORMATION
  Report Type: Spontaneous
  Country: CA (occurrence: CA)
  Receive Date: 20240417
  Receipt Date: 20241111
  Transmission Date: 20250115
  Serious: Yes (Hospitalization, Other)
  Sender: PFIZER
  Company Number: CA-PFIZER INC-202300450532

PATIENT
  Age: 82 Year
  Sex: Male

DRUGS (5)
  1. VYNDAMAX [Suspect]
     Active Substance: TAFAMIDIS
     Indication: Cardiac amyloidosis
     Dosage: 61 MG, 1X/DAY
     Route: 048
     Dates: start: 20231211, end: 2024
  2. ATORVASTATIN [Concomitant]
     Active Substance: ATORVASTATIN
     Dosage: 5 MG, DAILY
  3. DAPAGLIFLOZIN [Concomitant]
     Active Substance: DAPAGLIFLOZIN
     Dosage: 10 MG, DAILY
  4. PANTOPRAZOLE [Concomitant]
     Active Substance: PANTOPRAZOLE
     Dosage: 40 MG, 2X/DAY (TWICE DAILY)
  5. APIXABAN [Concomitant]
     Active Substance: APIXABAN
     Dosage: 2.5 MG, 2X/DAY

REACTIONS (33)
  - Lung disorder [Unknown]
  - Renal disorder [Unknown]
  - Gastrointestinal haemorrhage [Unknown]
  - Anaemia [Unknown]
  - Haemoglobin decreased [Unknown]
  - Acute kidney injury [Unknown]
  - Pleural effusion [Unknown]
  - Empyema [Unknown]
  - Cardiac failure congestive [Unknown]
  - Left ventricular dysfunction [Unknown]
  - Cellulitis [Unknown]
  - Atrial fibrillation [Unknown]
  - Hypotension [Unknown]
  - Blood urea increased [Unknown]
  - Mean cell volume increased [Unknown]
  - Mean platelet volume increased [Unknown]
  - Glomerular filtration rate decreased [Unknown]
  - Brain natriuretic peptide increased [Unknown]
  - Drug ineffective [Unknown]
  - Asthenia [Unknown]
  - Fatigue [Unknown]
  - Dyspnoea [Unknown]
  - Fluid retention [Recovering/Resolving]
  - Oedema [Recovering/Resolving]
  - Blood creatinine increased [Unknown]
  - Red blood cell count decreased [Unknown]
  - Haematocrit decreased [Unknown]
  - Mean cell haemoglobin increased [Unknown]
  - Red cell distribution width increased [Unknown]
  - Lymphocyte count decreased [Unknown]
  - Contusion [Unknown]
  - Breath sounds abnormal [Unknown]
  - Vasodilatation [Unknown]

NARRATIVE: CASE EVENT DATE: 20231201
